FAERS Safety Report 5588800-6 (Version None)
Quarter: 2008Q1

REPORT INFORMATION
  Report Type: 
  Country: None (occurrence: None)
  Receive Date: 20080111
  Receipt Date: 20080109
  Transmission Date: 20080703
  Serious: Yes (Hospitalization, Other)
  Sender: FDA-Public Use
  Company Number: ZA-GILEAD-2007-0014704

PATIENT
  Age: 39 Year
  Sex: Female
  Weight: 45.1 kg

DRUGS (6)
  1. TRUVADA [Suspect]
     Route: 048
     Dates: start: 20071108
  2. NEVIRAPINE [Concomitant]
     Route: 048
     Dates: start: 20071108
  3. COTRIMOXAZOLE [Concomitant]
  4. IRON SULFATETHIAMIN COMPOUND TAB [Concomitant]
  5. CEFTRIAXONE [Concomitant]
  6. METOCLOPRAMIDE [Concomitant]

REACTIONS (2)
  - FANCONI SYNDROME ACQUIRED [None]
  - HYPOCALCAEMIA [None]
